FAERS Safety Report 7263273-6 (Version None)
Quarter: 2011Q1

REPORT INFORMATION
  Report Type: 
  Country: None (occurrence: None)
  Receive Date: 20110130
  Receipt Date: 20100924
  Transmission Date: 20110831
  Serious: No
  Sender: FDA-Public Use
  Company Number: US-ABBOTT-10P-163-0673288-00

PATIENT
  Age: 58 Year
  Sex: Male

DRUGS (9)
  1. HUMIRA [Suspect]
     Indication: PSORIASIS
     Dates: start: 20100701
  2. ZOCOR [Concomitant]
     Indication: PRODUCT USED FOR UNKNOWN INDICATION
  3. AMBIEN [Concomitant]
     Indication: PRODUCT USED FOR UNKNOWN INDICATION
  4. SINGULAIR [Concomitant]
     Indication: PRODUCT USED FOR UNKNOWN INDICATION
  5. PAXIL [Concomitant]
     Indication: PRODUCT USED FOR UNKNOWN INDICATION
  6. ATARAX [Concomitant]
     Indication: PRODUCT USED FOR UNKNOWN INDICATION
  7. RELAFEN [Concomitant]
     Indication: PRODUCT USED FOR UNKNOWN INDICATION
  8. NEXIUM [Concomitant]
     Indication: PRODUCT USED FOR UNKNOWN INDICATION
  9. KLONOPIN [Concomitant]
     Indication: PRODUCT USED FOR UNKNOWN INDICATION

REACTIONS (1)
  - INJECTION SITE HAEMORRHAGE [None]
